FAERS Safety Report 5842678-1 (Version None)
Quarter: 2008Q3

REPORT INFORMATION
  Report Type: 
  Country: None (occurrence: None)
  Receive Date: 20080808
  Receipt Date: 20070808
  Transmission Date: 20090109
  Serious: Yes (Death)
  Sender: FDA-Public Use
  Company Number: 2006-03-0334

PATIENT
  Age: 6 Year
  Sex: Male
  Weight: 28.5766 kg

DRUGS (31)
  1. CLARITIN [Suspect]
     Indication: DRUG USE FOR UNKNOWN INDICATION
     Dosage: PO
     Route: 048
  2. LORATADINE [Suspect]
     Indication: DRUG USE FOR UNKNOWN INDICATION
  3. CHILDREN'S CLARITIN [Suspect]
     Indication: DRUG USE FOR UNKNOWN INDICATION
     Dosage: PO
     Route: 048
  4. ALAVERT [Suspect]
     Indication: DRUG USE FOR UNKNOWN INDICATION
  5. ALLERGY MEDICATION (CON.) [Concomitant]
  6. INFLUENZA VACCINE (PREV.) [Concomitant]
  7. VERMOX (PREV.) [Concomitant]
  8. PROMETHAZINE HYDROCHLORIDE WITH CODEINE (PREV.) [Concomitant]
  9. OMNICEF (PREV.) [Concomitant]
  10. SUDAFED (PREV.) [Concomitant]
  11. AUGMENTIN (PREV.) [Concomitant]
  12. DURICEF (PREV.) [Concomitant]
  13. NASONEX (PREV.) [Concomitant]
  14. CIPRO (PREV.) [Concomitant]
  15. SINGULAIR (PREV.) [Concomitant]
  16. AUGMENTIN (PREV.) [Concomitant]
  17. FLOXIN OTIC /01448501/ (PREV.) [Concomitant]
  18. ZITHROMAX (PREV.) [Concomitant]
  19. XOPENEX (PREV.) [Concomitant]
  20. FLUMADINE (PREV.) [Concomitant]
  21. TYLENOL WITH CODEINE (PREV.) [Concomitant]
  22. TUMS (PREV.) [Concomitant]
  23. MAALOX (PREV.) [Concomitant]
  24. BENADRYL (PREV.) [Concomitant]
  25. TRIAMINIC /00078201/ (PREV.) [Concomitant]
  26. HYDROCORTISONE (PREV.) [Concomitant]
  27. MOTRIN (PREV.) [Concomitant]
  28. ALLEGRA (PREV.) [Concomitant]
  29. ZANTAC (PREV.) [Concomitant]
  30. HYDROCORTISONE [Concomitant]
  31. PYRANTEL [Concomitant]

REACTIONS (17)
  - ABDOMINAL PAIN [None]
  - ARRHYTHMIA [None]
  - DRUG LEVEL INCREASED [None]
  - DYSURIA [None]
  - ENTEROBIASIS [None]
  - HEADACHE [None]
  - HYPERHIDROSIS [None]
  - MALAISE [None]
  - OTITIS EXTERNA [None]
  - OTITIS MEDIA [None]
  - POLLAKIURIA [None]
  - RHINITIS [None]
  - SINUSITIS [None]
  - SUDDEN DEATH [None]
  - UNRESPONSIVE TO STIMULI [None]
  - UPPER RESPIRATORY TRACT INFECTION [None]
  - VOMITING [None]
